FAERS Safety Report 5813653-8 (Version None)
Quarter: 2008Q3

REPORT INFORMATION
  Report Type: 
  Country: None (occurrence: None)
  Receive Date: 20080717
  Receipt Date: 20080711
  Transmission Date: 20090109
  Serious: Yes (Hospitalization)
  Sender: FDA-Public Use
  Company Number: A0738211A

PATIENT
  Age: 88 Year
  Sex: Female

DRUGS (4)
  1. VALTREX [Suspect]
     Dosage: 500MG PER DAY
     Route: 048
     Dates: start: 20080416
  2. NORVASC [Concomitant]
     Indication: BLOOD PRESSURE ABNORMAL
  3. ZESTRIL [Concomitant]
     Indication: BLOOD PRESSURE ABNORMAL
  4. METFORMIN [Concomitant]

REACTIONS (3)
  - DYSURIA [None]
  - HYPONATRAEMIA [None]
  - RENAL FAILURE ACUTE [None]
